FAERS Safety Report 11995465 (Version 1)
Quarter: 2016Q1

REPORT INFORMATION
  Report Type: Spontaneous
  Country: GR (occurrence: GR)
  Receive Date: 20160203
  Receipt Date: 20160203
  Transmission Date: 20160526
  Serious: Yes (Other)
  Sender: FDA-Public Use
  Company Number: GR-APOPHARMA-2016AP006139

PATIENT
  Age: 34 Year
  Sex: Female

DRUGS (2)
  1. FERRIPROX [Suspect]
     Active Substance: DEFERIPRONE
     Indication: HAEMOCHROMATOSIS
     Dosage: UNK
     Route: 065
     Dates: start: 2002
  2. DEFEROXAMINE [Concomitant]
     Active Substance: DEFEROXAMINE\DEFEROXAMINE MESYLATE
     Indication: HAEMOCHROMATOSIS
     Dosage: UNK
     Route: 065
     Dates: start: 2002

REACTIONS (7)
  - Hepatic cirrhosis [Recovering/Resolving]
  - Pulmonary fibrosis [Recovering/Resolving]
  - Hepatorenal syndrome [Recovering/Resolving]
  - Ascites [Unknown]
  - Gamma-glutamyltransferase increased [Unknown]
  - Pulmonary hypertension [Unknown]
  - Right ventricular failure [Unknown]
